FAERS Safety Report 6969120-1 (Version None)
Quarter: 2010Q3

REPORT INFORMATION
  Report Type: 
  Country: None (occurrence: None)
  Receive Date: 20100907
  Receipt Date: 20100826
  Transmission Date: 20110219
  Serious: Yes (Death, Other)
  Sender: FDA-Public Use
  Company Number: GXKR2010IN09711

PATIENT
  Age: 24 Year
  Sex: Male

DRUGS (1)
  1. DEXAMETHASONE (NGX) [Suspect]
     Route: 042

REACTIONS (17)
  - BODY TINEA [None]
  - CANDIDIASIS [None]
  - CUSHING'S SYNDROME [None]
  - CUSHINGOID [None]
  - DEPRESSED LEVEL OF CONSCIOUSNESS [None]
  - DRUG ABUSE [None]
  - ENCEPHALOPATHY [None]
  - INTERTRIGO [None]
  - LIPOHYPERTROPHY [None]
  - LOSS OF CONSCIOUSNESS [None]
  - MOUTH ULCERATION [None]
  - OEDEMA [None]
  - PYREXIA [None]
  - SKIN HYPERPIGMENTATION [None]
  - SKIN INFECTION [None]
  - SKIN STRIAE [None]
  - SWELLING FACE [None]
